FAERS Safety Report 7381312-9 (Version None)
Quarter: 2011Q1

REPORT INFORMATION
  Report Type: 
  Country: None (occurrence: None)
  Receive Date: 20110321
  Receipt Date: 20110309
  Transmission Date: 20110831
  Serious: Yes (Death, Hospitalization, Other)
  Sender: FDA-Public Use
  Company Number: 2010152123

PATIENT
  Age: 87 Year
  Sex: Female
  Weight: 50.8 kg

DRUGS (17)
  1. WARFARIN SODIUM [Suspect]
     Indication: DEEP VEIN THROMBOSIS
     Dosage: 3 MG,
     Dates: start: 20101005, end: 20101007
  2. WARFARIN SODIUM [Suspect]
     Indication: DEEP VEIN THROMBOSIS
     Dosage: 3 MG,
     Dates: start: 20100831, end: 20100919
  3. WARFARIN SODIUM [Suspect]
     Indication: DEEP VEIN THROMBOSIS
     Dosage: 3 MG,
     Dates: start: 20100923, end: 20100929
  4. DIHYDROCODEINE COMPOUND [Concomitant]
  5. ZOPICLONE (ZOPICLONE) [Concomitant]
  6. OMEPRAZOLE [Concomitant]
  7. LEVOTHYROXINE (LEVOTHYROXINE) [Concomitant]
  8. TRIMETHOPRIM [Suspect]
     Indication: URINARY TRACT INFECTION
     Dosage: 200 MG, 2X/DAY
     Dates: start: 20100918
  9. FENTANYL [Concomitant]
  10. FRAGMIN [Suspect]
     Indication: DEEP VEIN THROMBOSIS
     Dosage: 10000 IU, 1X/DAY, SUBCUTANEOUS; 5000 IU, 1X/DAY
     Route: 058
     Dates: start: 20100807, end: 20100919
  11. FRAGMIN [Suspect]
     Indication: THROMBOSIS PROPHYLAXIS
     Dosage: 10000 IU, 1X/DAY, SUBCUTANEOUS; 5000 IU, 1X/DAY
     Route: 058
     Dates: start: 20100807, end: 20100919
  12. FRAGMIN [Suspect]
     Indication: DEEP VEIN THROMBOSIS
     Dosage: 10000 IU, 1X/DAY, SUBCUTANEOUS; 5000 IU, 1X/DAY
     Route: 058
     Dates: start: 20101005
  13. FRAGMIN [Suspect]
     Indication: THROMBOSIS PROPHYLAXIS
     Dosage: 10000 IU, 1X/DAY, SUBCUTANEOUS; 5000 IU, 1X/DAY
     Route: 058
     Dates: start: 20101005
  14. IBUPROFEN [Suspect]
     Dosage: 600 MG, 3X/DAY
     Dates: start: 20080101, end: 20100919
  15. FUROSEMIDE [Concomitant]
  16. PARACETAMOL (PARACETAMOL) [Concomitant]
  17. MOVICOL (MACROGOL, POTASSIUM CHLORIDE, SODIUM BICARBONATE, SODIUM CHLO [Concomitant]

REACTIONS (12)
  - GENERAL PHYSICAL HEALTH DETERIORATION [None]
  - BLOOD PRESSURE DECREASED [None]
  - URINARY TRACT INFECTION [None]
  - INTERNATIONAL NORMALISED RATIO INCREASED [None]
  - PLATELET COUNT INCREASED [None]
  - SUBCUTANEOUS HAEMATOMA [None]
  - DYSPHAGIA [None]
  - LOWER RESPIRATORY TRACT INFECTION [None]
  - INJECTION SITE HAEMORRHAGE [None]
  - INTERNATIONAL NORMALISED RATIO DECREASED [None]
  - ANTICOAGULATION DRUG LEVEL ABOVE THERAPEUTIC [None]
  - SOMNOLENCE [None]
